FAERS Safety Report 5394942-0 (Version None)
Quarter: 2007Q3

REPORT INFORMATION
  Report Type: 
  Country: None (occurrence: None)
  Receive Date: 20070720
  Receipt Date: 20070720
  Transmission Date: 20080115
  Serious: No
  Sender: FDA-Public Use
  Company Number: None

PATIENT
  Sex: Female
  Weight: 68.0396 kg

DRUGS (1)
  1. CLIMARA [Suspect]
     Indication: OESTROGEN REPLACEMENT THERAPY
     Dosage: 0.025MG  ESTRADIOL 1 X WEEK PATCH
     Dates: start: 19900101

REACTIONS (2)
  - MENSTRUATION IRREGULAR [None]
  - PHARMACEUTICAL PRODUCT COMPLAINT [None]
